FAERS Safety Report 12223641 (Version 1)
Quarter: 2016Q1

REPORT INFORMATION
  Report Type: Spontaneous
  Country: US (occurrence: US)
  Receive Date: 20160330
  Receipt Date: 20160330
  Transmission Date: 20160526
  Serious: Yes (Hospitalization, Other)
  Sender: FDA-Public Use
  Company Number: US-MDT-ADR-2016-00595

PATIENT
  Age: 60 Year
  Sex: Female

DRUGS (1)
  1. BACLOFEN, UNKNOWN [Suspect]
     Active Substance: BACLOFEN
     Indication: MUSCLE SPASTICITY
     Route: 037

REACTIONS (4)
  - Pyrexia [Recovered/Resolved]
  - Drug withdrawal syndrome [Recovered/Resolved]
  - Implant site infection [Unknown]
  - Pain [Unknown]
